FAERS Safety Report 23214084 (Version 1)
Quarter: 2023Q4

REPORT INFORMATION
  Report Type: Report from Study
  Country: US (occurrence: US)
  Receive Date: 20231121
  Receipt Date: 20231121
  Transmission Date: 20240110
  Serious: Yes (Hospitalization)
  Sender: FDA-Public Use
  Company Number: US-Eisai-EC-2023-153204

PATIENT
  Age: 68 Year
  Sex: Male

DRUGS (2)
  1. LENVIMA [Suspect]
     Active Substance: LENVATINIB
     Indication: Hepatocellular carcinoma
     Dosage: PAUSED LENVIMA FOR ONE WEEK
     Route: 048
     Dates: start: 202303
  2. LENVIMA [Suspect]
     Active Substance: LENVATINIB
     Dosage: PAUSED LENVIMA FOR ONE WEEK
     Route: 048
     Dates: start: 2023

REACTIONS (1)
  - Aortic aneurysm rupture [Unknown]

NARRATIVE: CASE EVENT DATE: 20230926
